FAERS Safety Report 4469696-2 (Version None)
Quarter: 2004Q3

REPORT INFORMATION
  Report Type: 
  Country: None (occurrence: None)
  Receive Date: 20040917
  Receipt Date: 20031205
  Transmission Date: 20050211
  Serious: Yes (Life-Threatening, Hospitalization)
  Sender: FDA-Public Use
  Company Number: 2003-BP-10333BP(0)

PATIENT
  Sex: Female

DRUGS (7)
  1. VIRAMUNE [Suspect]
     Indication: HIV INFECTION
     Dosage: 400 MG (200 MG, 1 IN 1 D), PO
     Route: 048
     Dates: start: 20031117, end: 20031204
  2. VIRAMUNE [Suspect]
     Indication: HIV INFECTION
     Dosage: 400 MG (200 MG, 1 IN 1 D), PO
     Route: 048
     Dates: start: 20031103
  3. LOPRESSOR [Concomitant]
  4. ELANAPRIL                   (ENALAPRIL) [Concomitant]
  5. AZT [Concomitant]
  6. TENOFOVIR                 (TENOFOVIR) [Concomitant]
  7. ADVAIR                     (SERETIDE MITE) [Concomitant]

REACTIONS (1)
  - HEPATITIS [None]
